FAERS Safety Report 5762744-9 (Version None)
Quarter: 2008Q2

REPORT INFORMATION
  Report Type: 
  Country: None (occurrence: None)
  Receive Date: 20080609
  Receipt Date: 20080602
  Transmission Date: 20081010
  Serious: Yes (Hospitalization, Disabling)
  Sender: FDA-Public Use
  Company Number: JP-ASTRAZENECA-2008AP04228

PATIENT
  Sex: Female

DRUGS (1)
  1. ANAPEINE INJECTION [Suspect]
     Indication: ANALGESIA
     Dosage: DOSE UNKNOWN
     Route: 008

REACTIONS (2)
  - HYPOAESTHESIA [None]
  - MUSCULAR WEAKNESS [None]
